FAERS Safety Report 9265375 (Version 2)
Quarter: 2013Q2

REPORT INFORMATION
  Report Type: Spontaneous
  Country: ES (occurrence: ES)
  Receive Date: 20130501
  Receipt Date: 20130610
  Transmission Date: 20140414
  Serious: No
  Sender: FDA-Public Use
  Company Number: ES-ASTRAZENECA-2013SE27221

PATIENT
  Sex: Female
  Weight: 62 kg

DRUGS (12)
  1. ANASTROZOL [Suspect]
     Indication: BREAST CANCER
     Dosage: DAILY
     Route: 048
     Dates: start: 2010
  2. SERETIDE [Concomitant]
     Indication: ASTHMA
     Dosage: 50/500, 1 DF
     Route: 055
  3. TERBASMIN [Concomitant]
  4. SINGULAIR [Concomitant]
  5. FOSAMAX [Concomitant]
     Dosage: WEEKLY
  6. NATECAL [Concomitant]
  7. OMEPRAZOLE [Concomitant]
  8. EZETROL [Concomitant]
     Dosage: 10
  9. ORFIDAL [Concomitant]
  10. TRANKIMAZIN [Concomitant]
     Dosage: 0.5
  11. DUSPATALIN [Concomitant]
  12. SPASMOCTIL [Concomitant]

REACTIONS (1)
  - Photophobia [Not Recovered/Not Resolved]
